FAERS Safety Report 5151004-5 (Version None)
Quarter: 2006Q4

REPORT INFORMATION
  Report Type: 
  Country: None (occurrence: None)
  Receive Date: 20061115
  Receipt Date: 20061115
  Transmission Date: 20070319
  Serious: Yes (Life-Threatening, Hospitalization, Disabling, Congenital Anomaly, Other)
  Sender: FDA-Public Use
  Company Number: None

PATIENT
  Sex: Female
  Weight: 49.8957 kg

DRUGS (2)
  1. MIFEPREX [Suspect]
     Indication: ABORTION INDUCED
     Dosage: 1 PILL OF UNKNOWN MG  3 DAYS PO
     Route: 048
     Dates: start: 20061101, end: 20061103
  2. UNKNOWN PILL THAT IS SUPPOSE TO BE MIFIPREX [Concomitant]

REACTIONS (4)
  - DRUG EXPOSURE DURING PREGNANCY [None]
  - DRUG INEFFECTIVE [None]
  - INDUCED ABORTION FAILED [None]
  - PHARMACEUTICAL PRODUCT COMPLAINT [None]
